FAERS Safety Report 22397514 (Version 1)
Quarter: 2023Q2

REPORT INFORMATION
  Report Type: Spontaneous
  Country: CN (occurrence: CN)
  Receive Date: 20230602
  Receipt Date: 20230602
  Transmission Date: 20230722
  Serious: No
  Sender: FDA-Public Use
  Company Number: CN-009507513-2305CHN009234

PATIENT
  Sex: Female

DRUGS (1)
  1. LAGEVRIO [Suspect]
     Active Substance: MOLNUPIRAVIR
     Indication: Pneumonia viral
     Dosage: UNK
     Route: 048
     Dates: start: 2023, end: 202305

REACTIONS (7)
  - Feeling hot [Unknown]
  - Sputum retention [Unknown]
  - Chest discomfort [Unknown]
  - Swelling face [Unknown]
  - Erythema [Unknown]
  - Product use in unapproved indication [Unknown]
  - Product prescribing issue [Unknown]

NARRATIVE: CASE EVENT DATE: 20230101
